FAERS Safety Report 8544571-2 (Version None)
Quarter: 2012Q3

REPORT INFORMATION
  Report Type: 
  Country: None (occurrence: None)
  Receive Date: 20120727
  Receipt Date: 20120723
  Transmission Date: 20120928
  Serious: Yes (Death)
  Sender: FDA-Public Use
  Company Number: FR-ASTRAZENECA-2012SE51835

PATIENT
  Age: 28082 Day
  Sex: Female

DRUGS (11)
  1. RISPERDAL [Concomitant]
     Dates: start: 20111005, end: 20120604
  2. ZAMUDOL LP [Concomitant]
  3. ACETAMINOPHEN [Concomitant]
  4. VITAMIN D [Concomitant]
  5. SEROQUEL [Suspect]
     Route: 048
     Dates: start: 20120521
  6. ZAMUDOL LP [Concomitant]
  7. PARKINANE LP [Concomitant]
  8. SEROQUEL [Suspect]
     Indication: PSYCHOTIC DISORDER
     Route: 048
     Dates: start: 20120507, end: 20120604
  9. ALPRAZOLAM [Concomitant]
  10. RISPERDAL [Concomitant]
     Dates: start: 20110802, end: 20120521
  11. ZOPLICONE LP [Concomitant]

REACTIONS (1)
  - COMPLETED SUICIDE [None]
